FAERS Safety Report 8435241-X (Version None)
Quarter: 2012Q2

REPORT INFORMATION
  Report Type: 
  Country: None (occurrence: None)
  Receive Date: 20120608
  Receipt Date: 20120608
  Transmission Date: 20120825
  Serious: No
  Sender: FDA-Public Use
  Company Number: None

PATIENT
  Age: 49 Year
  Sex: Male
  Weight: 74.8435 kg

DRUGS (1)
  1. LATUDA [Suspect]
     Indication: SCHIZOPHRENIA
     Dosage: 80MG 2 DAILY PO
     Route: 048
     Dates: start: 20120507, end: 20120607

REACTIONS (2)
  - MIDDLE INSOMNIA [None]
  - FEELING ABNORMAL [None]
